FAERS Safety Report 9025272 (Version 2)
Quarter: 2013Q1

REPORT INFORMATION
  Report Type: Report from Study
  Country: JP (occurrence: JP)
  Receive Date: 20130122
  Receipt Date: 20130305
  Transmission Date: 20140127
  Serious: Yes (Other)
  Sender: FDA-Public Use
  Company Number: JP-PFIZER INC-2012206441

PATIENT
  Age: 52 Year
  Sex: Male
  Weight: 55 kg

DRUGS (2)
  1. TEMSIROLIMUS [Suspect]
     Indication: METASTATIC RENAL CELL CARCINOMA
     Dosage: 25 MG, WEEKLY
     Route: 042
     Dates: start: 20110524, end: 20110621
  2. RESTAMIN [Concomitant]
     Dosage: 50 MG, UNK
     Route: 048

REACTIONS (1)
  - Hyperkalaemia [Recovering/Resolving]
